FAERS Safety Report 6995857-4 (Version None)
Quarter: 2010Q3

REPORT INFORMATION
  Report Type: 
  Country: None (occurrence: None)
  Receive Date: 20100918
  Receipt Date: 20090429
  Transmission Date: 20110219
  Serious: Yes (Other)
  Sender: FDA-Public Use
  Company Number: US-WYE-H06900608

PATIENT
  Sex: Male

DRUGS (4)
  1. EFFEXOR XR [Suspect]
     Indication: STRESS
     Dosage: ^OPENS A 150 MG CAPSULE AND POURS ABOUT HALF OUT^
     Route: 048
     Dates: start: 20050101
  2. EFFEXOR XR [Suspect]
     Indication: MOOD ALTERED
  3. ATENOLOL [Concomitant]
     Indication: HYPERTENSION
  4. VALTREX [Concomitant]
     Indication: HERPES ZOSTER
     Dosage: AS NEEDED

REACTIONS (7)
  - CONDITION AGGRAVATED [None]
  - DRUG EFFECT DECREASED [None]
  - DRUG WITHDRAWAL SYNDROME [None]
  - FATIGUE [None]
  - HYPERTENSION [None]
  - INTENTIONAL DRUG MISUSE [None]
  - IRRITABILITY [None]
